FAERS Safety Report 5812191-6 (Version None)
Quarter: 2008Q3

REPORT INFORMATION
  Report Type: 
  Country: None (occurrence: None)
  Receive Date: 20080716
  Receipt Date: 20080707
  Transmission Date: 20090109
  Serious: Yes (Other)
  Sender: FDA-Public Use
  Company Number: JP-AMGEN-US291964

PATIENT
  Age: 64 Year
  Sex: Female

DRUGS (3)
  1. ENBREL [Suspect]
     Indication: RHEUMATOID ARTHRITIS
     Route: 058
     Dates: start: 20080625, end: 20080625
  2. BUCILLAMINE [Concomitant]
     Route: 048
     Dates: start: 20080606, end: 20080626
  3. RHEUMATREX [Concomitant]
     Dosage: UNKNOWN
     Route: 048
     Dates: start: 20080517, end: 20080626

REACTIONS (11)
  - BLOOD PRESSURE INCREASED [None]
  - BODY TEMPERATURE DECREASED [None]
  - CEREBRAL INFARCTION [None]
  - DIZZINESS [None]
  - FATIGUE [None]
  - HEADACHE [None]
  - INNER EAR DISORDER [None]
  - MALAISE [None]
  - NAUSEA [None]
  - VERTIGO [None]
  - VOMITING [None]
